FAERS Safety Report 23214444 (Version 2)
Quarter: 2024Q1

REPORT INFORMATION
  Report Type: Spontaneous
  Country: US (occurrence: US)
  Receive Date: 20231121
  Receipt Date: 20240109
  Transmission Date: 20240410
  Serious: Yes (Hospitalization)
  Sender: FDA-Public Use
  Company Number: US-NEUROCRINE BIOSCIENCES INC.-2023NBI09829

PATIENT
  Age: 18 Year
  Sex: Male

DRUGS (1)
  1. INGREZZA [Suspect]
     Active Substance: VALBENAZINE
     Indication: Tardive dyskinesia
     Dosage: 40 MILLIGRAM, QD
     Route: 065
     Dates: start: 20230927, end: 20231013

REACTIONS (7)
  - Hospitalisation [Unknown]
  - Coordination abnormal [Unknown]
  - Hypotonia [Unknown]
  - Dysstasia [Unknown]
  - Tremor [Unknown]
  - Muscle rigidity [Unknown]
  - Drooling [Unknown]

NARRATIVE: CASE EVENT DATE: 20231029
